FAERS Safety Report 9027879 (Version 1)
Quarter: 2013Q1

REPORT INFORMATION
  Report Type: Spontaneous
  Country: US (occurrence: None)
  Receive Date: 20130115
  Receipt Date: 20130115
  Transmission Date: 20140127
  Serious: Yes (Life-Threatening)
  Sender: FDA-Public Use
  Company Number: None

PATIENT
  Age: 62 Year
  Sex: Male
  Weight: 76.2 kg

DRUGS (1)
  1. JALYN [Suspect]
     Indication: NOCTURIA
     Dosage: 0.5-0.4MG ONCE DAILY
     Dates: start: 20120815, end: 20130103

REACTIONS (6)
  - Personality change [None]
  - Thinking abnormal [None]
  - Suicidal ideation [None]
  - Weight decreased [None]
  - Back pain [None]
  - Blood pressure increased [None]
